FAERS Safety Report 9852907 (Version 1)
Quarter: 2014Q1

REPORT INFORMATION
  Report Type: Spontaneous
  Country: US (occurrence: CA)
  Receive Date: 20140129
  Receipt Date: 20140129
  Transmission Date: 20141002
  Serious: Yes (Hospitalization)
  Sender: FDA-Public Use
  Company Number: CA-FRI-1000053163

PATIENT
  Age: 73 Year
  Sex: Male

DRUGS (1)
  1. ROFLUMILAST [Suspect]
     Dosage: 500 MCG
     Route: 048
     Dates: start: 20131203

REACTIONS (1)
  - Pneumonia [Not Recovered/Not Resolved]
